FAERS Safety Report 11103029 (Version 1)
Quarter: 2015Q2

REPORT INFORMATION
  Report Type: Spontaneous
  Country: CH (occurrence: CH)
  Receive Date: 20150511
  Receipt Date: 20150511
  Transmission Date: 20150821
  Serious: Yes (Death)
  Sender: FDA-Public Use
  Company Number: CH-PFIZER INC-2015156548

PATIENT
  Age: 33 Year
  Sex: Male

DRUGS (1)
  1. CRIZOTINIB [Suspect]
     Active Substance: CRIZOTINIB
     Indication: NEOPLASM MALIGNANT

REACTIONS (3)
  - Disease progression [Unknown]
  - Neoplasm malignant [Unknown]
  - Death [Fatal]
